FAERS Safety Report 17362545 (Version 5)
Quarter: 2021Q2

REPORT INFORMATION
  Report Type: Report from Study
  Country: US (occurrence: US)
  Receive Date: 20200203
  Receipt Date: 20210506
  Transmission Date: 20210716
  Serious: Yes (Other)
  Sender: FDA-Public Use
  Company Number: NVSC2020US025424

PATIENT
  Age: 55 Year
  Sex: Female

DRUGS (5)
  1. ILARIS [Suspect]
     Active Substance: CANAKINUMAB
     Dosage: 150 MG (Q28 DAYS)
     Route: 058
  2. ILARIS [Suspect]
     Active Substance: CANAKINUMAB
     Indication: AUTOIMMUNE DISORDER
     Dosage: 150 MG, Q4W
     Route: 058
     Dates: start: 20131118
  3. ILARIS [Suspect]
     Active Substance: CANAKINUMAB
     Indication: FAMILIAL MEDITERRANEAN FEVER
     Dosage: 150 MG, Q3W
     Route: 058
     Dates: start: 20191016
  4. ILARIS [Suspect]
     Active Substance: CANAKINUMAB
     Dosage: UNK
     Route: 065
  5. ILARIS [Suspect]
     Active Substance: CANAKINUMAB
     Dosage: 300 MG, ONCE 28 DAYS
     Route: 058

REACTIONS (9)
  - Loss of consciousness [Recovering/Resolving]
  - Seizure cluster [Recovering/Resolving]
  - Facial pain [Unknown]
  - Muscle rigidity [Recovering/Resolving]
  - Inappropriate schedule of product administration [Unknown]
  - Dyskinesia [Recovering/Resolving]
  - Pyrexia [Recovering/Resolving]
  - Diaphragmatic spasm [Unknown]
  - Urticaria [Recovering/Resolving]

NARRATIVE: CASE EVENT DATE: 20200128
